FAERS Safety Report 6520698-1 (Version None)
Quarter: 2009Q4

REPORT INFORMATION
  Report Type: 
  Country: None (occurrence: None)
  Receive Date: 20091229
  Receipt Date: 20091222
  Transmission Date: 20100525
  Serious: No
  Sender: FDA-Public Use
  Company Number: US-ROXANE LABORATORIES, INC.-2009-RO-01284RO

PATIENT
  Age: 66 Year
  Sex: Female
  Weight: 70 kg

DRUGS (9)
  1. PREDNISONE [Suspect]
  2. BONIVA [Suspect]
     Indication: BONE DISORDER
     Route: 048
     Dates: start: 20091110
  3. LOPRESSOR [Concomitant]
  4. PLAVIX [Concomitant]
  5. ASPIRIN [Concomitant]
  6. PROTONIX [Concomitant]
  7. XANAX [Concomitant]
  8. RESTORIL [Concomitant]
  9. PERCOCET [Concomitant]

REACTIONS (2)
  - PAIN [None]
  - SPINAL COMPRESSION FRACTURE [None]
